FAERS Safety Report 8153015-4 (Version None)
Quarter: 2012Q1

REPORT INFORMATION
  Report Type: 
  Country: None (occurrence: None)
  Receive Date: 20120221
  Receipt Date: 20120209
  Transmission Date: 20120608
  Serious: Yes (Hospitalization)
  Sender: FDA-Public Use
  Company Number: US-CELGENEUS-163-21660-11081390

PATIENT
  Sex: Male
  Weight: 107.1 kg

DRUGS (23)
  1. ALKALOL [Concomitant]
     Route: 065
  2. COLACE [Concomitant]
     Route: 065
  3. DILAUDID [Concomitant]
     Route: 037
  4. RITALIN [Concomitant]
     Dosage: 7.5 MILLIGRAM
     Route: 065
  5. NEFAZODONE HCL [Concomitant]
     Route: 065
  6. REGLAN [Concomitant]
     Dosage: 10 MILLIGRAM
     Route: 065
  7. MBL MOUTHWASH [Concomitant]
     Route: 048
  8. ABRAXANE [Suspect]
     Indication: HEAD AND NECK CANCER
     Dosage: 50 MILLIGRAM/SQ. METER
     Route: 065
     Dates: start: 20110620, end: 20110801
  9. MIRTAZAPINE [Concomitant]
     Route: 065
  10. SEROQUEL [Concomitant]
     Route: 065
  11. ATENOLOL [Concomitant]
     Dosage: 50 MILLIGRAM
     Route: 065
  12. CARBOPLATIN [Suspect]
     Indication: HEAD AND NECK CANCER
     Dosage: AUC OF 1.5
     Route: 041
     Dates: start: 20110620, end: 20110801
  13. METHADONE HCL [Concomitant]
     Indication: ORAL PAIN
     Route: 048
  14. OXYCODONE HCL [Concomitant]
     Dosage: 90-120MG
     Route: 065
  15. TERAZOSIN HCL [Concomitant]
     Dosage: 4 MILLIGRAM
     Route: 065
  16. LORAZEPAM [Concomitant]
     Route: 065
  17. ONDANSETRON [Concomitant]
     Route: 065
  18. OXYCODONE HCL [Concomitant]
     Indication: ORAL PAIN
     Dosage: 120 MILLIGRAM
     Route: 065
  19. ATIVAN [Concomitant]
     Route: 065
  20. ARMODAFINIL [Concomitant]
     Route: 065
  21. SENNA [Concomitant]
     Route: 065
  22. SERZONE [Concomitant]
     Route: 065
  23. SIMVASTATIN [Concomitant]
     Route: 065

REACTIONS (4)
  - DEHYDRATION [None]
  - ORAL PAIN [None]
  - CONFUSIONAL STATE [None]
  - FAILURE TO THRIVE [None]
